FAERS Safety Report 8134011-X (Version None)
Quarter: 2012Q1

REPORT INFORMATION
  Report Type: 
  Country: None (occurrence: None)
  Receive Date: 20120213
  Receipt Date: 20120203
  Transmission Date: 20120608
  Serious: Yes (Other)
  Sender: FDA-Public Use
  Company Number: US-ASTRAZENECA-2012SE02399

PATIENT
  Age: 59 Year
  Sex: Female
  Weight: 82.6 kg

DRUGS (21)
  1. VICODIN [Concomitant]
     Dosage: 5-500 MG, TAKE 1 TABLET DAILY, AS NEEDED.
     Route: 048
  2. PHENAZOPYRIDINE HCL TAB [Concomitant]
     Indication: PAIN
     Dosage: TAKE 1 TABLET THREE TIMES DAILY, AS NEEDED
     Route: 048
  3. CEFTIN [Concomitant]
     Route: 048
  4. CRESTOR [Suspect]
     Dosage: 0.5 TABLETS BY MOUTH DAILY.
     Route: 048
  5. ASPIRIN [Concomitant]
     Route: 048
  6. NITROSTAT [Concomitant]
     Dosage: PLACE 0.6 MG TABLET UNDER TONGUE 3 TIMES DAILY AS NEEDED. MAY REPEAT DOSE EVERY 5 MIN UPTO 5 MIN.
     Route: 060
  7. NORVASC [Concomitant]
     Route: 048
  8. PLAVIX [Concomitant]
     Route: 048
  9. LORTAB [Concomitant]
     Dosage: 10-500 MG, TAKE 1 TABLET 2 TIMES DAILY AS NEEDED.
     Route: 048
  10. VOLTAREN [Concomitant]
     Dosage: TAKE 1 TABLET TWO TIMES DAILY WITH MEALS
     Route: 048
  11. VASOTEC [Concomitant]
     Route: 048
  12. ATIVAN [Concomitant]
     Route: 048
  13. FLEXERIL [Concomitant]
     Indication: MUSCLE SPASMS
     Dosage: TAKE 1 TABLET EVERY EIGHT HOURS AS NEEDED
     Route: 048
  14. ATROVENT [Concomitant]
     Dosage: 0.02%, TAKE 0.5 MG NEBULIZATION EVERY 6 HOURS
  15. CELEXA [Concomitant]
     Route: 048
  16. ADVAIR DISKUS 100/50 [Concomitant]
     Dosage: 100-50 MCG, INHALE INTO LUNGS DAILY AS NEEDED
     Route: 055
  17. DECONEX DMX [Concomitant]
     Dosage: 10-15-380, TAKE 1 TABLET TWO TIMES DAILY AS NEEDED.
     Route: 048
  18. KLONOPIN [Concomitant]
     Dosage: 1/2-1 TABLET EVERY 8 HOURS AS NEEDED.
     Route: 048
  19. PEPCID [Concomitant]
     Route: 048
  20. TRAVATAN [Concomitant]
     Dosage: 0.004 %, PLACE ONE DROP ON BOTH THE EYES NIGHTLY.
  21. FLECTOR [Concomitant]
     Dosage: 1.3%, PLACE ON TOTHE SKIN 2 TIMES DAILY AS NEEDED.

REACTIONS (4)
  - CHRONIC OBSTRUCTIVE PULMONARY DISEASE [None]
  - CARDIAC DISORDER [None]
  - GLAUCOMA [None]
  - WRONG TECHNIQUE IN DRUG USAGE PROCESS [None]
